FAERS Safety Report 6368301-8 (Version None)
Quarter: 2009Q3

REPORT INFORMATION
  Report Type: 
  Country: None (occurrence: None)
  Receive Date: 20090922
  Receipt Date: 20090908
  Transmission Date: 20100115
  Serious: Yes (Hospitalization)
  Sender: FDA-Public Use
  Company Number: US-ROCHE-655765

PATIENT
  Sex: Male

DRUGS (8)
  1. PEG-INTERFERON A-2A (RO 25-8310) [Suspect]
     Indication: HEPATITIS C
     Route: 065
  2. RIBAVIRIN [Suspect]
     Indication: HEPATITIS C
     Route: 065
  3. GABAPENTIN [Concomitant]
  4. DILANTIN [Concomitant]
  5. SERTRALINE HCL [Concomitant]
  6. SOMA [Concomitant]
  7. TRAZODONE [Concomitant]
  8. OMEPRAZOLE [Concomitant]

REACTIONS (3)
  - ACUTE RESPIRATORY DISTRESS SYNDROME [None]
  - ANAEMIA [None]
  - COLITIS ISCHAEMIC [None]
